FAERS Safety Report 7044986-8 (Version None)
Quarter: 2010Q4

REPORT INFORMATION
  Report Type: 
  Country: None (occurrence: None)
  Receive Date: 20101008
  Receipt Date: 20101008
  Transmission Date: 20110411
  Serious: Yes (Other)
  Sender: FDA-Public Use
  Company Number: None

PATIENT
  Age: 77 Year
  Sex: Male
  Weight: 91.173 kg

DRUGS (1)
  1. AVODART [Suspect]
     Indication: PROSTATE CANCER
     Dosage: 0.5 MG DAILY PO
     Route: 048

REACTIONS (3)
  - BREAST CANCER MALE [None]
  - OESTROGEN RECEPTOR ASSAY POSITIVE [None]
  - PROGESTERONE RECEPTOR ASSAY POSITIVE [None]
